FAERS Safety Report 18568807 (Version 7)
Quarter: 2025Q2

REPORT INFORMATION
  Report Type: Spontaneous
  Country: MX (occurrence: MX)
  Receive Date: 20201202
  Receipt Date: 20250620
  Transmission Date: 20250716
  Serious: Yes (Other)
  Sender: NOVARTIS
  Company Number: MX-NOVARTISPH-NVSC2020MX318530

PATIENT
  Sex: Male

DRUGS (2)
  1. GLIVEC [Suspect]
     Active Substance: IMATINIB MESYLATE
     Indication: Chronic myeloid leukaemia
     Route: 065
  2. GLIVEC [Suspect]
     Active Substance: IMATINIB MESYLATE
     Route: 065

REACTIONS (6)
  - Cataract [Unknown]
  - Visual impairment [Unknown]
  - Retinal tear [Unknown]
  - Blindness unilateral [Unknown]
  - Fall [Unknown]
  - Eye colour change [Unknown]
